FAERS Safety Report 6638361-5 (Version None)
Quarter: 2010Q1

REPORT INFORMATION
  Report Type: 
  Country: None (occurrence: None)
  Receive Date: 20100317
  Receipt Date: 20100308
  Transmission Date: 20100710
  Serious: Yes (Other)
  Sender: FDA-Public Use
  Company Number: A0846243A

PATIENT
  Age: 13 Year
  Sex: Female
  Weight: 54 kg

DRUGS (11)
  1. VENTOLIN [Suspect]
     Indication: ASTHMA
     Dosage: 2PUFF AS REQUIRED
     Route: 055
     Dates: start: 20100212, end: 20100212
  2. TYLENOL-500 [Suspect]
     Indication: PAIN
     Dosage: 1000MGD PER DAY
     Route: 048
  3. ADVAIR DISKUS 100/50 [Suspect]
     Indication: ASTHMA
     Dosage: 1PUFF PER DAY
     Route: 055
     Dates: start: 20090101, end: 20100212
  4. DAYTRANA [Concomitant]
     Dosage: 20MGD PER DAY
     Dates: start: 20090101
  5. CLONIDINE [Concomitant]
     Indication: ANXIETY
     Dosage: .2MG PER DAY
     Dates: start: 20090101
  6. BUSPIRONE HCL [Concomitant]
     Indication: ATTENTION DEFICIT/HYPERACTIVITY DISORDER
     Dosage: 10MGD PER DAY
     Dates: start: 20090101
  7. MIDODRINE HYDROCHLORIDE [Concomitant]
     Indication: ORTHOSTATIC HYPERTENSION
     Dosage: 1TAB PER DAY
     Route: 048
     Dates: start: 20090101
  8. CYCLOBENZAPRIN [Concomitant]
     Indication: ENTHESOPATHY
     Dosage: 5MGD PER DAY
     Route: 048
     Dates: start: 20090101
  9. PLAQUENIL [Concomitant]
     Indication: ENTHESOPATHY
     Dosage: 200MGD PER DAY
     Route: 048
     Dates: start: 20090101
  10. UNSPECIFIED MEDICATION [Concomitant]
     Route: 061
     Dates: start: 20090101
  11. METHOTREXATE [Concomitant]
     Indication: ENTHESOPATHY
     Dosage: .6CC PER DAY
     Route: 048
     Dates: start: 20090101

REACTIONS (3)
  - FLUSHING [None]
  - LIP SWELLING [None]
  - URTICARIA [None]
